FAERS Safety Report 8650771 (Version 2)
Quarter: 2012Q4

REPORT INFORMATION
  Report Type: 
  Country: DE (occurrence: DE)
  Receive Date: 20120705
  Receipt Date: 20121002
  Transmission Date: 20130627
  Serious: Yes (Hospitalization, Other)
  Sender: FDA-Public Use
  Company Number: DE-UCBSA-060397

PATIENT
  Age: 74 Year
  Sex: Male

DRUGS (3)
  1. KEPPRA [Suspect]
     Indication: EPILEPSY
     Dosage: STRENGTH AND DOSAGE UNKNOWN
     Dates: start: 201108
  2. KEPPRA [Suspect]
     Indication: EPILEPSY
     Dosage: UNKNOWN DOSE, 4 TABLETS
  3. KEPPRA [Suspect]
     Indication: EPILEPSY
     Dosage: 2 TABLETS
     Dates: end: 2012

REACTIONS (7)
  - Anaemia [Not Recovered/Not Resolved]
  - Respiratory disorder [Unknown]
  - Asthenia [Unknown]
  - Blood urine present [Unknown]
  - Leukopenia [Unknown]
  - Bone marrow failure [Unknown]
  - Intestinal perforation [Unknown]
